FAERS Safety Report 5324226-8 (Version None)
Quarter: 2007Q2

REPORT INFORMATION
  Report Type: 
  Country: None (occurrence: None)
  Receive Date: 20070507
  Receipt Date: 20070427
  Transmission Date: 20071010
  Serious: Yes (Life-Threatening, Hospitalization)
  Sender: FDA-Public Use
  Company Number: CAP07000155

PATIENT
  Age: 54 Year
  Sex: Female

DRUGS (6)
  1. ASACOL [Suspect]
     Indication: COLITIS
     Dosage: 2400 MG TWICE DAILY, ORAL , COUPLE OF TABLETS; ORAL
     Route: 048
     Dates: start: 20060701, end: 20070101
  2. ACTONEL [Suspect]
     Indication: OSTEOPOROSIS
     Dosage: 35MG, ONCE WEEKLY; ORAL
     Route: 048
     Dates: start: 20060701
  3. CALCIUM (CALCIUM) [Concomitant]
  4. VITAMIN D [Concomitant]
  5. ERGOCALCIFEROL [Concomitant]
  6. SALOFALK (AMINOSALICYLIC ACID) [Concomitant]

REACTIONS (1)
  - PULMONARY EMBOLISM [None]
